FAERS Safety Report 17835458 (Version 1)
Quarter: 2020Q2

REPORT INFORMATION
  Report Type: Spontaneous
  Country: US (occurrence: US)
  Receive Date: 20200528
  Receipt Date: 20200528
  Transmission Date: 20200714
  Serious: Yes (Hospitalization)
  Sender: FDA-Public Use
  Company Number: US-PFIZER INC-0001591001PHAMED

PATIENT
  Age: 49 Year
  Sex: Female
  Weight: 54 kg

DRUGS (3)
  1. SODIUM CHLORIDE. [Concomitant]
     Active Substance: SODIUM CHLORIDE
     Indication: IRIDOCYCLITIS
     Route: 056
  2. POLYETHYLENE GLYCOL 3350. [Concomitant]
     Active Substance: POLYETHYLENE GLYCOL 3350
     Indication: IRIDOCYCLITIS
     Dosage: UNK
     Route: 056
  3. DEPO-MEDROL [Suspect]
     Active Substance: METHYLPREDNISOLONE ACETATE
     Indication: IRIDOCYCLITIS
     Dosage: UNK
     Route: 056

REACTIONS (4)
  - Injection site pain [Recovered/Resolved]
  - Conjunctival oedema [Recovered/Resolved]
  - Injection site inflammation [Recovered/Resolved]
  - Hypersensitivity [Recovered/Resolved]
